FAERS Safety Report 16482482 (Version 1)
Quarter: 2019Q2

REPORT INFORMATION
  Report Type: Report from Study
  Country: None (occurrence: CA)
  Receive Date: 20190627
  Receipt Date: 20190627
  Transmission Date: 20190711
  Serious: Yes (Hospitalization)
  Sender: FDA-Public Use
  Company Number: CA-ABBVIE-19K-028-2829214-00

PATIENT
  Age: 59 Year
  Sex: Female

DRUGS (1)
  1. HUMIRA [Suspect]
     Active Substance: ADALIMUMAB
     Indication: UVEITIS
     Route: 058
     Dates: start: 20140603, end: 20190617

REACTIONS (7)
  - Asthenia [Not Recovered/Not Resolved]
  - Gastroenteritis viral [Unknown]
  - Vomiting [Recovered/Resolved]
  - Condition aggravated [Not Recovered/Not Resolved]
  - Loss of consciousness [Unknown]
  - Pneumonia [Not Recovered/Not Resolved]
  - Feeding disorder [Not Recovered/Not Resolved]

NARRATIVE: CASE EVENT DATE: 201906
